FAERS Safety Report 14869341 (Version 4)
Quarter: 2018Q3

REPORT INFORMATION
  Report Type: Report from Study
  Country: FR (occurrence: FR)
  Receive Date: 20180509
  Receipt Date: 20180816
  Transmission Date: 20181010
  Serious: Yes (Hospitalization, Other)
  Sender: FDA-Public Use
  Company Number: FR-AXELLIA-001641

PATIENT
  Age: 56 Year
  Sex: Male

DRUGS (23)
  1. LANTUS [Concomitant]
     Active Substance: INSULIN GLARGINE
  2. URAPIDIL [Concomitant]
     Active Substance: URAPIDIL
     Dates: start: 20171019, end: 20171024
  3. LINEZOLID. [Concomitant]
     Active Substance: LINEZOLID
     Dates: start: 20171006, end: 20171011
  4. TRIATEC [Concomitant]
     Dates: start: 20171020
  5. METRONIDAZOLE. [Suspect]
     Active Substance: METRONIDAZOLE
     Indication: PRODUCT USED FOR UNKNOWN INDICATION
     Dates: start: 20171023, end: 20171030
  6. TRIMEBUTINE [Concomitant]
     Active Substance: TRIMEBUTINE
     Dates: start: 20171006, end: 20171012
  7. CEFEPIME [Concomitant]
     Active Substance: CEFEPIME HYDROCHLORIDE
     Dates: start: 20171007, end: 20171014
  8. NEFOPAM [Concomitant]
     Active Substance: NEFOPAM
     Dates: start: 20171006, end: 20171012
  9. ENOXAPARIN [Concomitant]
     Active Substance: ENOXAPARIN
     Dates: start: 20171008
  10. NOREPINEPHRINE. [Concomitant]
     Active Substance: NOREPINEPHRINE
     Dates: start: 20171124, end: 20171126
  11. METFORMIN [Concomitant]
     Active Substance: METFORMIN HYDROCHLORIDE
     Dates: start: 20171110, end: 20171211
  12. SITAGLIPTIN/SITAGLIPTIN PHOSPHATE [Concomitant]
     Dates: start: 20171110, end: 20171211
  13. AMBISOME [Suspect]
     Active Substance: AMPHOTERICIN B
     Indication: PRODUCT USED FOR UNKNOWN INDICATION
     Dates: start: 20171110, end: 20171122
  14. CEFOTAXIME [Suspect]
     Active Substance: CEFOTAXIME SODIUM
     Indication: PRODUCT USED FOR UNKNOWN INDICATION
     Dates: start: 20171014, end: 20171030
  15. TARGOCID [Suspect]
     Active Substance: TEICOPLANIN
     Indication: LIVER ABSCESS
     Dosage: 1400MG FROM 09?NOV?2017 TO 15?NOV?2017
     Route: 042
     Dates: start: 20171106, end: 20171106
  16. CALCIPARINE [Concomitant]
     Active Substance: HEPARIN CALCIUM
     Dates: start: 20171006, end: 20171007
  17. DAPTOMYCIN. [Concomitant]
     Active Substance: DAPTOMYCIN
     Dates: start: 20171124, end: 20171125
  18. VANCOMYCIN [Suspect]
     Active Substance: VANCOMYCIN
     Indication: PRODUCT USED FOR UNKNOWN INDICATION
     Dates: start: 20171011, end: 20171019
  19. ZOPICLONE [Concomitant]
     Active Substance: ZOPICLONE
     Dates: start: 20171017, end: 20171023
  20. MEROPENEM. [Concomitant]
     Active Substance: MEROPENEM
     Dates: start: 20171124, end: 20171128
  21. TAZOCILLINE [Suspect]
     Active Substance: PIPERACILLIN SODIUM\TAZOBACTAM SODIUM
     Indication: PRODUCT USED FOR UNKNOWN INDICATION
     Dates: start: 20171004, end: 20171007
  22. NICARDIPINE [Concomitant]
     Active Substance: NICARDIPINE
     Dates: start: 20171017, end: 20171020
  23. PANTOPRAZOLE [Concomitant]
     Active Substance: PANTOPRAZOLE

REACTIONS (6)
  - Respiratory gas exchange disorder [Recovered/Resolved]
  - Oedema [Recovered/Resolved]
  - Intra-abdominal fluid collection [Recovered/Resolved]
  - Renal failure [Recovered/Resolved]
  - Systemic candida [Recovered/Resolved]
  - Anaemia [Recovered/Resolved]

NARRATIVE: CASE EVENT DATE: 20171107
